FAERS Safety Report 5605250-4 (Version None)
Quarter: 2008Q1

REPORT INFORMATION
  Report Type: 
  Country: None (occurrence: None)
  Receive Date: 20080129
  Receipt Date: 20080116
  Transmission Date: 20080703
  Serious: Yes (Life-Threatening, Hospitalization)
  Sender: FDA-Public Use
  Company Number: BR-PFIZER INC-2007041750

PATIENT
  Sex: Female

DRUGS (2)
  1. DEPO-PROVERA SUSPENSION/INJ [Suspect]
     Indication: CONTRACEPTION
     Route: 030
     Dates: start: 20060901, end: 20060901
  2. DEPO-PROVERA SUSPENSION/INJ [Suspect]
     Route: 030
     Dates: start: 20070512, end: 20070512

REACTIONS (5)
  - EMOTIONAL DISORDER [None]
  - INJECTION SITE DISCOLOURATION [None]
  - INJECTION SITE INFECTION [None]
  - INJECTION SITE NODULE [None]
  - INJECTION SITE PAIN [None]
